FAERS Safety Report 18427548 (Version 1)
Quarter: 2020Q4

REPORT INFORMATION
  Report Type: Report from Study
  Country: IN (occurrence: IN)
  Receive Date: 20201026
  Receipt Date: 20201026
  Transmission Date: 20210114
  Serious: No
  Sender: FDA-Public Use
  Company Number: IN-LARKEN LABORATORIES, INC.-2093116

PATIENT
  Age: 38 Year
  Sex: Male
  Weight: 70.46 kg

DRUGS (1)
  1. DOXYCYCLINE HYCLATE TABLET [Suspect]
     Active Substance: DOXYCYCLINE HYCLATE
     Indication: HORDEOLUM
     Route: 048

REACTIONS (4)
  - Rash erythematous [Recovered/Resolved]
  - Erythema multiforme [Recovered/Resolved]
  - Symmetrical drug-related intertriginous and flexural exanthema [Recovered/Resolved]
  - Parakeratosis [Recovered/Resolved]
